FAERS Safety Report 13079614 (Version 1)
Quarter: 2017Q1

REPORT INFORMATION
  Report Type: Spontaneous
  Country: NL (occurrence: JP)
  Receive Date: 20170103
  Receipt Date: 20170103
  Transmission Date: 20170428
  Serious: Yes (Hospitalization)
  Sender: FDA-Public Use
  Company Number: NL-ASTRAZENECA-2016SF37029

PATIENT
  Age: 65 Year
  Sex: Male

DRUGS (3)
  1. OMEPRAZOL [Suspect]
     Active Substance: OMEPRAZOLE
     Indication: PRODUCT USED FOR UNKNOWN INDICATION
     Route: 048
     Dates: start: 200704
  2. HYDROCHLOROTHIAZIDE. [Interacting]
     Active Substance: HYDROCHLOROTHIAZIDE
     Indication: HYPERTENSION
     Dosage: 12.5 MG, EVERY DAY NON-AZ PRODUCT
     Route: 048
     Dates: start: 201603, end: 20160706
  3. OMEPRAZOL [Interacting]
     Active Substance: OMEPRAZOLE
     Indication: PRODUCT USED FOR UNKNOWN INDICATION
     Dosage: OMEPRAZOLE WAS REDUCED TO UNKNOWN DOSE
     Route: 048

REACTIONS (6)
  - Drug interaction [Unknown]
  - Blood potassium decreased [Recovering/Resolving]
  - Blood magnesium decreased [Recovering/Resolving]
  - Renal impairment [Unknown]
  - Diarrhoea [Unknown]
  - Blood calcium decreased [Recovering/Resolving]

NARRATIVE: CASE EVENT DATE: 20160706
